FAERS Safety Report 8827809 (Version 1)
Quarter: 2012Q4

REPORT INFORMATION
  Report Type: 
  Country: US (occurrence: US)
  Receive Date: 20121008
  Receipt Date: 20121008
  Transmission Date: 20130627
  Serious: No
  Sender: FDA-Public Use
  Company Number: US-PFIZER INC-2012243031

PATIENT
  Age: 62 Year
  Sex: Male

DRUGS (1)
  1. INLYTA [Suspect]
     Indication: RENAL CANCER
     Dosage: 5 mg, 1 Tablet twice daily
     Route: 048
     Dates: start: 20120521

REACTIONS (4)
  - Blister [Unknown]
  - Hyperkeratosis [Unknown]
  - Cough [Unknown]
  - Chest pain [Unknown]
